FAERS Safety Report 19721106 (Version 1)
Quarter: 2021Q3

REPORT INFORMATION
  Report Type: Spontaneous
  Country: US (occurrence: US)
  Receive Date: 20210819
  Receipt Date: 20210819
  Transmission Date: 20211014
  Serious: No
  Sender: FDA-Public Use
  Company Number: US-PFIZER INC-2021592622

PATIENT
  Age: 74 Year
  Sex: Female
  Weight: 77.56 kg

DRUGS (5)
  1. XANAX [Suspect]
     Active Substance: ALPRAZOLAM
     Indication: PAIN
  2. XANAX [Suspect]
     Active Substance: ALPRAZOLAM
     Indication: VERTIGO
  3. XANAX [Suspect]
     Active Substance: ALPRAZOLAM
     Indication: ANXIETY
  4. XANAX [Suspect]
     Active Substance: ALPRAZOLAM
     Indication: DIZZINESS
     Dosage: 0.25 MG
  5. XANAX [Suspect]
     Active Substance: ALPRAZOLAM
     Indication: MENIERE^S DISEASE

REACTIONS (1)
  - Therapeutic response unexpected [Unknown]
